FAERS Safety Report 24056978 (Version 1)
Quarter: 2024Q3

REPORT INFORMATION
  Report Type: Report from Study
  Country: US (occurrence: US)
  Receive Date: 20240706
  Receipt Date: 20240706
  Transmission Date: 20241017
  Serious: Yes (Other)
  Sender: ABBVIE
  Company Number: US-ABBVIE-5729674

PATIENT
  Sex: Female

DRUGS (2)
  1. HUMIRA [Suspect]
     Active Substance: ADALIMUMAB
     Indication: Product used for unknown indication
     Dosage: CITRATE FREE; FORM STRENGTH: 40 MILLIGRAM
     Route: 058
  2. HUMIRA [Suspect]
     Active Substance: ADALIMUMAB
     Dosage: CITRATE FREE; FORM STRENGTH: 40 MILLIGRAM
     Route: 058
     Dates: start: 20240113, end: 20240418

REACTIONS (15)
  - Hernia [Unknown]
  - Vision blurred [Unknown]
  - Gait disturbance [Unknown]
  - Arthralgia [Unknown]
  - Back pain [Unknown]
  - Neck pain [Unknown]
  - Hypotension [Unknown]
  - Fluid retention [Unknown]
  - Oedema [Unknown]
  - Dyspnoea [Unknown]
  - Wheezing [Unknown]
  - Blood glucose increased [Unknown]
  - Erythema [Unknown]
  - Abdominal discomfort [Unknown]
  - Mast cell activation syndrome [Unknown]
